FAERS Safety Report 6288809-3 (Version None)
Quarter: 2009Q3

REPORT INFORMATION
  Report Type: 
  Country: None (occurrence: None)
  Receive Date: 20090729
  Receipt Date: 20090717
  Transmission Date: 20100115
  Serious: Yes (Other)
  Sender: FDA-Public Use
  Company Number: CA-PFIZER INC-2009215869

PATIENT
  Age: 25 Year

DRUGS (3)
  1. ZELDOX [Suspect]
     Dosage: 120 MG, 2X/DAY
  2. ZELDOX [Suspect]
     Dosage: UNK NEW REDUCED DOSE
  3. RISPERDAL [Concomitant]

REACTIONS (3)
  - CRYING [None]
  - MOOD ALTERED [None]
  - SUICIDAL IDEATION [None]
